FAERS Safety Report 13892768 (Version 1)
Quarter: 2017Q3

REPORT INFORMATION
  Report Type: Spontaneous
  Country: US (occurrence: US)
  Receive Date: 20170822
  Receipt Date: 20170822
  Transmission Date: 20171127
  Serious: No
  Sender: FDA-Public Use
  Company Number: US-ROCHE-1343766

PATIENT
  Sex: Female
  Weight: 50.85 kg

DRUGS (2)
  1. HERCEPTIN [Suspect]
     Active Substance: TRASTUZUMAB
     Indication: BREAST CANCER METASTATIC
     Route: 065
  2. PERJETA [Suspect]
     Active Substance: PERTUZUMAB
     Indication: PRODUCT USED FOR UNKNOWN INDICATION
     Route: 065

REACTIONS (11)
  - Dizziness [Unknown]
  - Neuralgia [Unknown]
  - Muscular weakness [Unknown]
  - Rash papular [Unknown]
  - Hypoaesthesia [Unknown]
  - Gait disturbance [Unknown]
  - Epistaxis [Unknown]
  - Weight gain poor [Unknown]
  - Alopecia [Unknown]
  - Pruritus [Unknown]
  - Onychomadesis [Unknown]
